FAERS Safety Report 6558532-6 (Version None)
Quarter: 2010Q1

REPORT INFORMATION
  Report Type: 
  Country: None (occurrence: None)
  Receive Date: 20100129
  Receipt Date: 20100121
  Transmission Date: 20100710
  Serious: Yes (Other)
  Sender: FDA-Public Use
  Company Number: US-JNJFOC-20100109406

PATIENT
  Sex: Female
  Weight: 54.43 kg

DRUGS (5)
  1. CONCERTA [Suspect]
     Indication: HYPERSOMNIA
     Route: 048
  2. CONCERTA [Suspect]
     Route: 048
  3. CONCERTA [Suspect]
     Route: 048
  4. VITAMIN B-12 [Concomitant]
     Route: 065
  5. VITAMIN B COMPLEX CAP [Concomitant]
     Route: 065

REACTIONS (9)
  - ABDOMINAL PAIN UPPER [None]
  - FREQUENT BOWEL MOVEMENTS [None]
  - HAEMATOCHEZIA [None]
  - HYPERSOMNIA [None]
  - MEDICATION RESIDUE [None]
  - OFF LABEL USE [None]
  - PRODUCT QUALITY ISSUE [None]
  - SWELLING [None]
  - WEIGHT DECREASED [None]
